FAERS Safety Report 13624215 (Version 2)
Quarter: 2017Q2

REPORT INFORMATION
  Report Type: Spontaneous
  Country: RU (occurrence: RU)
  Receive Date: 20170607
  Receipt Date: 20170623
  Transmission Date: 20170830
  Serious: Yes (Other)
  Sender: FDA-Public Use
  Company Number: RU-ELI_LILLY_AND_COMPANY-RU201706001546

PATIENT
  Age: 51 Year
  Sex: Female

DRUGS (7)
  1. ERBITUX [Suspect]
     Active Substance: CETUXIMAB
     Indication: COLON CANCER
     Dosage: 465 MG, WEEKLY (1/W)
     Route: 065
     Dates: start: 201409, end: 201607
  2. LEUCOVORIN                         /00566701/ [Concomitant]
     Active Substance: LEUCOVORIN
     Dosage: 740 MG, UNK
     Dates: start: 201409, end: 201607
  3. IRINOTECAN [Concomitant]
     Active Substance: IRINOTECAN
     Dosage: 330 MG, UNKNOWN
     Route: 065
     Dates: start: 201409, end: 201607
  4. LEUCOVORIN                         /00566701/ [Concomitant]
     Active Substance: LEUCOVORIN
     Indication: COLON CANCER
     Dosage: 740 MG, UNKNOWN
     Route: 065
     Dates: start: 201309, end: 201406
  5. 5-FU                               /00098801/ [Concomitant]
     Active Substance: FLUOROURACIL
     Indication: COLON CANCER
     Dosage: 740 MG, UNKNOWN
     Route: 040
     Dates: start: 201309, end: 201406
  6. 5-FU                               /00098801/ [Concomitant]
     Active Substance: FLUOROURACIL
     Dosage: 4400 MG, UNKNOWN
     Route: 042
     Dates: end: 201607
  7. IRINOTECAN [Concomitant]
     Active Substance: IRINOTECAN
     Indication: COLON CANCER
     Dosage: UNK, UNKNOWN
     Route: 065
     Dates: start: 201309, end: 201406

REACTIONS (9)
  - Conjunctivitis [Recovered/Resolved]
  - Skin reaction [Recovered/Resolved]
  - Onychoclasis [Recovered/Resolved]
  - Nail discolouration [Recovered/Resolved]
  - Blood alkaline phosphatase increased [Recovered/Resolved]
  - Alanine aminotransferase increased [Recovered/Resolved]
  - Aspartate aminotransferase increased [Recovered/Resolved]
  - Diarrhoea [Recovered/Resolved]
  - Headache [Recovered/Resolved]

NARRATIVE: CASE EVENT DATE: 201410
